FAERS Safety Report 4876835-8 (Version None)
Quarter: 2005Q4

REPORT INFORMATION
  Report Type: 
  Country: None (occurrence: None)
  Receive Date: 20051206
  Receipt Date: 20050920
  Transmission Date: 20060501
  Serious: No
  Sender: FDA-Public Use
  Company Number: USA0508106663

PATIENT
  Age: 57 Year
  Sex: Male
  Weight: 112 kg

DRUGS (2)
  1. CYMBALTA [Suspect]
     Indication: DIABETIC NEUROPATHY
     Dosage: 60 MG DAY
     Dates: start: 20050312, end: 20050317
  2. NEURONTIN [Concomitant]

REACTIONS (3)
  - DIZZINESS [None]
  - FALL [None]
  - HYPOTENSION [None]
